FAERS Safety Report 8993101 (Version 1)
Quarter: 2013Q1

REPORT INFORMATION
  Report Type: Report from Study
  Country: US (occurrence: US)
  Receive Date: 20130102
  Receipt Date: 20130102
  Transmission Date: 20140127
  Serious: Yes (Hospitalization)
  Sender: FDA-Public Use
  Company Number: US-ROCHE-1172027

PATIENT
  Age: 51 Year
  Sex: Female
  Weight: 49 kg

DRUGS (8)
  1. BEVACIZUMAB [Suspect]
     Indication: OVARIAN CANCER
     Dosage: OVER 30-90 MINS ON DAY 1 OF CYCLES 2-6; DATE OF LAST DOSE PRIOR TO SAE: 30/AUG/2012
     Route: 042
     Dates: start: 20120712
  2. BEVACIZUMAB [Suspect]
     Dosage: OVER 30-90 MINS ON DAY 1 OF CYCLES 7-22
     Route: 042
  3. VELIPARIB [Suspect]
     Indication: OVARIAN CANCER
     Dosage: ON DAYS 2-5 OF CYCLE 1; DATE OF LAST DOSE PRIOR TO SAE: 04/SEP/2012
     Route: 048
     Dates: start: 20120712
  4. VELIPARIB [Suspect]
     Dosage: ON DAYS 2-5 OF CYCLES 2-6
     Route: 048
  5. CARBOPLATIN [Suspect]
     Indication: OVARIAN CANCER
     Dosage: DATE OF LAST DOSE PRIOR TO SAE: 30/AUG/2012
     Route: 042
     Dates: start: 20120712
  6. CARBOPLATIN [Suspect]
     Dosage: AUC=6; OVER 30 MINS ON DAY 1 OF CYCLES 2-6
     Route: 042
  7. PACLITAXEL [Suspect]
     Indication: OVARIAN CANCER
     Dosage: DATE OF LAST DOSE PRIOR TO SAE: 06/SEP/2012
     Route: 042
     Dates: start: 20120712
  8. PACLITAXEL [Suspect]
     Dosage: OVER 1 HR ON DAYS 1, 8 AND 15 OF CYCLES 2-6
     Route: 042

REACTIONS (11)
  - Hypoalbuminaemia [Not Recovered/Not Resolved]
  - Hyponatraemia [Not Recovered/Not Resolved]
  - Neutrophil count decreased [Not Recovered/Not Resolved]
  - Hepatic failure [Not Recovered/Not Resolved]
  - Oedema peripheral [Not Recovered/Not Resolved]
  - Abdominal pain [Not Recovered/Not Resolved]
  - Ascites [Not Recovered/Not Resolved]
  - Constipation [Not Recovered/Not Resolved]
  - Nausea [Not Recovered/Not Resolved]
  - Vomiting [Not Recovered/Not Resolved]
  - Anaemia [Not Recovered/Not Resolved]
